FAERS Safety Report 26210125 (Version 1)
Quarter: 2025Q4

REPORT INFORMATION
  Report Type: Report from Study
  Country: IN (occurrence: IN)
  Receive Date: 20251229
  Receipt Date: 20251229
  Transmission Date: 20260117
  Serious: Yes (Hospitalization, Other)
  Sender: DAIICHI
  Company Number: IN-AstraZeneca-CH-01019698A

PATIENT
  Age: 47 Year
  Sex: Female
  Weight: 65 kg

DRUGS (1)
  1. ENHERTU [Suspect]
     Active Substance: FAM-TRASTUZUMAB DERUXTECAN-NXKI
     Indication: Product used for unknown indication
     Dosage: 100 ML, ONCE EVERY 3 WK
     Route: 040
     Dates: start: 20251120

REACTIONS (9)
  - Blood sodium decreased [Recovered/Resolved]
  - Seizure [Unknown]
  - Hemiplegia [Unknown]
  - Lower respiratory tract infection [Recovered/Resolved]
  - Brain oedema [Unknown]
  - Dyspnoea [Unknown]
  - Asthenia [Unknown]
  - Dysarthria [Unknown]
  - Depressed mood [Unknown]
